FAERS Safety Report 15672731 (Version 1)
Quarter: 2018Q4

REPORT INFORMATION
  Report Type: Report from Study
  Country: US (occurrence: US)
  Receive Date: 20181129
  Receipt Date: 20181129
  Transmission Date: 20190205
  Serious: No
  Sender: FDA-Public Use
  Company Number: US-TESARO-US-2018TSO03807

PATIENT
  Age: 66 Year
  Sex: Female

DRUGS (2)
  1. ZEJULA [Suspect]
     Active Substance: NIRAPARIB
     Indication: OVARIAN CANCER
     Dosage: 100 MG, QD
     Route: 048
     Dates: start: 20180711, end: 2018
  2. ZEJULA [Suspect]
     Active Substance: NIRAPARIB
     Dosage: 200 MG, PM WITHOUT FOOD
     Dates: start: 20180906

REACTIONS (6)
  - Performance status decreased [Unknown]
  - Retching [Not Recovered/Not Resolved]
  - Intentional underdose [Not Recovered/Not Resolved]
  - Nausea [Recovering/Resolving]
  - Constipation [Recovering/Resolving]
  - Cough [Recovered/Resolved]

NARRATIVE: CASE EVENT DATE: 20180711
